FAERS Safety Report 11640249 (Version 1)
Quarter: 2015Q4

REPORT INFORMATION
  Report Type: Spontaneous
  Country: US (occurrence: None)
  Receive Date: 20151016
  Receipt Date: 20151016
  Transmission Date: 20160304
  Serious: Yes (Hospitalization)
  Sender: FDA-Public Use
  Company Number: None

PATIENT
  Age: 56 Year
  Sex: Female
  Weight: 56.7 kg

DRUGS (1)
  1. COMPAZINE [Suspect]
     Active Substance: PROCHLORPERAZINE MALEATE
     Indication: HEADACHE
     Dates: start: 20151006, end: 20151006

REACTIONS (3)
  - Gait disturbance [None]
  - Unevaluable event [None]
  - Seizure [None]

NARRATIVE: CASE EVENT DATE: 20151006
